FAERS Safety Report 6276132-2 (Version None)
Quarter: 2009Q3

REPORT INFORMATION
  Report Type: 
  Country: None (occurrence: None)
  Receive Date: 20090717
  Receipt Date: 20090717
  Transmission Date: 20100115
  Serious: Yes (Other)
  Sender: FDA-Public Use
  Company Number: None

PATIENT
  Sex: Male
  Weight: 78.0187 kg

DRUGS (1)
  1. PHENAZOPYRIDINE HCL TAB [Suspect]
     Indication: URINARY TRACT INFECTION
     Dosage: 1 TAB 3/DAY
     Dates: start: 20090621, end: 20090702

REACTIONS (1)
  - MUSCLE SPASMS [None]
